FAERS Safety Report 4536658-6 (Version None)
Quarter: 2004Q4

REPORT INFORMATION
  Report Type: 
  Country: None (occurrence: None)
  Receive Date: 20041220
  Receipt Date: 20041214
  Transmission Date: 20050328
  Serious: Yes (Disabling)
  Sender: FDA-Public Use
  Company Number: 04H-163-0283612-00

PATIENT
  Sex: Male

DRUGS (1)
  1. DEMEROL [Suspect]
     Indication: PAIN
     Dates: start: 20011101, end: 20011101

REACTIONS (5)
  - CONVULSION [None]
  - INJURY [None]
  - LOSS OF CONSCIOUSNESS [None]
  - MALAISE [None]
  - PAIN [None]
